FAERS Safety Report 6851929-6 (Version None)
Quarter: 2010Q3

REPORT INFORMATION
  Report Type: 
  Country: None (occurrence: None)
  Receive Date: 20100717
  Receipt Date: 20080331
  Transmission Date: 20110219
  Serious: Yes (Other)
  Sender: FDA-Public Use
  Company Number: US-PFIZER INC-2008007008

PATIENT
  Sex: Female
  Weight: 58.5 kg

DRUGS (5)
  1. CHANTIX [Suspect]
     Indication: SMOKING CESSATION THERAPY
     Route: 048
     Dates: start: 20080106
  2. LORTAB [Concomitant]
  3. TOPROL-XL [Concomitant]
  4. DYAZIDE [Concomitant]
  5. KLONOPIN [Concomitant]

REACTIONS (5)
  - DEPRESSION [None]
  - FEELING ABNORMAL [None]
  - HYPOTENSION [None]
  - LIP DRY [None]
  - LIP PAIN [None]
